FAERS Safety Report 26062527 (Version 1)
Quarter: 2025Q4

REPORT INFORMATION
  Report Type: Spontaneous
  Country: US (occurrence: US)
  Receive Date: 20251119
  Receipt Date: 20251119
  Transmission Date: 20260117
  Serious: Yes (Other)
  Sender: COOPERSURGICAL
  Company Number: US-COOPERSURGICAL, INC.-2025CPS001062

PATIENT
  Age: 39 Year
  Sex: Female
  Weight: 74.376 kg

DRUGS (1)
  1. PARAGARD T 380A [Suspect]
     Active Substance: COPPER
     Indication: Contraception
     Dosage: UNK
     Route: 015
     Dates: start: 20131013

REACTIONS (21)
  - Ovarian cyst [Unknown]
  - Postmenopausal haemorrhage [Unknown]
  - Surgery [Recovered/Resolved]
  - Device breakage [Recovered/Resolved]
  - Foreign body in urogenital tract [Recovered/Resolved]
  - Complication of device removal [Recovered/Resolved]
  - Cervix inflammation [Unknown]
  - Emotional distress [Not Recovered/Not Resolved]
  - Procedural pain [Recovered/Resolved]
  - Cervical friability [Recovered/Resolved]
  - Coital bleeding [Unknown]
  - Pain [Unknown]
  - Menstruation irregular [Unknown]
  - Intermenstrual bleeding [Unknown]
  - Vaginal infection [Unknown]
  - Oligomenorrhoea [Unknown]
  - Amenorrhoea [Unknown]
  - Pelvic pain [Unknown]
  - Device dislocation [Recovered/Resolved]
  - Device use issue [Recovered/Resolved]
  - Off label use [Unknown]

NARRATIVE: CASE EVENT DATE: 20140828
